FAERS Safety Report 12385115 (Version 1)
Quarter: 2016Q2

REPORT INFORMATION
  Report Type: Spontaneous
  Country: US (occurrence: None)
  Receive Date: 20160518
  Receipt Date: 20160518
  Transmission Date: 20160815
  Serious: Yes (Other)
  Sender: FDA-Public Use
  Company Number: None

PATIENT
  Age: 58 Year
  Sex: Female
  Weight: 80.29 kg

DRUGS (1)
  1. MOMETASONE FUROATE 50 MCG NASAL SPRAY [Suspect]
     Active Substance: MOMETASONE FUROATE
     Indication: RHINITIS ALLERGIC
     Dosage: 50MCG SPRAY 1-2 SPRAY INTO NOSE 1-2X/DAY?JAN 2015 - 5/20
     Route: 045
     Dates: start: 201501

REACTIONS (3)
  - Hypersensitivity [None]
  - Nasal congestion [None]
  - Product substitution issue [None]

NARRATIVE: CASE EVENT DATE: 20160513
